FAERS Safety Report 5210657-3 (Version None)
Quarter: 2007Q1

REPORT INFORMATION
  Report Type: 
  Country: None (occurrence: None)
  Receive Date: 20070117
  Receipt Date: 20070111
  Transmission Date: 20070707
  Serious: Yes (Hospitalization)
  Sender: FDA-Public Use
  Company Number: CA-JNJFOC-20060105836

PATIENT
  Sex: Female
  Weight: 150 kg

DRUGS (30)
  1. REMICADE [Suspect]
     Route: 042
  2. REMICADE [Suspect]
     Route: 042
  3. REMICADE [Suspect]
     Route: 042
  4. REMICADE [Suspect]
     Route: 042
  5. REMICADE [Suspect]
     Route: 042
  6. REMICADE [Suspect]
     Route: 042
  7. REMICADE [Suspect]
     Route: 042
  8. REMICADE [Suspect]
     Route: 042
  9. REMICADE [Suspect]
     Route: 042
  10. REMICADE [Suspect]
     Route: 042
  11. REMICADE [Suspect]
     Route: 042
  12. REMICADE [Suspect]
     Route: 042
  13. REMICADE [Suspect]
     Route: 042
  14. REMICADE [Suspect]
     Route: 042
  15. REMICADE [Suspect]
     Route: 042
  16. REMICADE [Suspect]
     Route: 042
  17. REMICADE [Suspect]
     Route: 042
  18. REMICADE [Suspect]
     Route: 042
  19. REMICADE [Suspect]
     Route: 042
  20. REMICADE [Suspect]
     Route: 042
  21. REMICADE [Suspect]
     Indication: RHEUMATOID ARTHRITIS
     Route: 042
  22. ARTHROTEC [Concomitant]
  23. FOLIC ACID [Concomitant]
  24. MTX [Concomitant]
  25. DIAZEPAM [Concomitant]
  26. LIPIDIL [Concomitant]
  27. CRESTOR [Concomitant]
  28. CALCIUM [Concomitant]
  29. ATACAND [Concomitant]
  30. MS CONTIN [Concomitant]

REACTIONS (3)
  - BRONCHITIS [None]
  - DRUG EFFECT DECREASED [None]
  - HODGKIN'S DISEASE [None]
